FAERS Safety Report 9299388 (Version 1)
Quarter: 2013Q2

REPORT INFORMATION
  Report Type: Spontaneous
  Country: US (occurrence: US)
  Receive Date: 20130520
  Receipt Date: 20130520
  Transmission Date: 20140414
  Serious: Yes (Hospitalization)
  Sender: FDA-Public Use
  Company Number: US-B.I. PHARMACEUTICALS,INC./RIDGEFIELD-2013-BI-12921BP

PATIENT
  Age: 7 Decade
  Sex: Female

DRUGS (2)
  1. PRADAXA [Suspect]
     Dates: end: 201304
  2. PRADAXA [Suspect]
     Dates: start: 201304

REACTIONS (1)
  - Procedural haemorrhage [Unknown]
